FAERS Safety Report 25853261 (Version 1)
Quarter: 2025Q3

REPORT INFORMATION
  Report Type: Report from Study
  Country: GT (occurrence: GT)
  Receive Date: 20250926
  Receipt Date: 20250926
  Transmission Date: 20251021
  Serious: Yes (Hospitalization, Disabling, Other)
  Sender: ELI LILLY AND COMPANY
  Company Number: GT-ELI_LILLY_AND_COMPANY-GT202504024842

PATIENT
  Age: 65 Year
  Sex: Female
  Weight: 62.4 kg

DRUGS (15)
  1. VERZENIO [Suspect]
     Active Substance: ABEMACICLIB
     Indication: Breast cancer
     Dosage: 150 MG, DAILY
     Route: 048
     Dates: start: 20250424
  2. VERZENIO [Suspect]
     Active Substance: ABEMACICLIB
     Dosage: 150 MG, BID
     Route: 048
  3. VERZENIO [Suspect]
     Active Substance: ABEMACICLIB
     Dosage: 150 MG, DAILY
     Route: 048
     Dates: start: 20250424
  4. VERZENIO [Suspect]
     Active Substance: ABEMACICLIB
     Dosage: 150 MG, QOD (EVERY 48 HOURS)
     Route: 048
     Dates: start: 20250409
  5. VERZENIO [Suspect]
     Active Substance: ABEMACICLIB
     Route: 048
  6. PANTOPRAZOLE SODIUM [Suspect]
     Active Substance: PANTOPRAZOLE SODIUM
     Indication: Gastrointestinal disorder prophylaxis
     Dosage: 40 MG, DAILY
     Route: 048
     Dates: start: 2020
  7. FEMARA [Concomitant]
     Active Substance: LETROZOLE
     Indication: Breast cancer
  8. LETROZOLE [Concomitant]
     Active Substance: LETROZOLE
     Indication: Breast cancer
     Route: 065
  9. IVABRADINE [Concomitant]
     Active Substance: IVABRADINE
     Indication: Product used for unknown indication
     Route: 065
  10. LEVOTHYROXINE SODIUM [Concomitant]
     Active Substance: LEVOTHYROXINE SODIUM
     Indication: Product used for unknown indication
     Route: 065
  11. SELVIGON [Concomitant]
     Indication: Product used for unknown indication
     Route: 065
  12. PREGABALIN [Concomitant]
     Active Substance: PREGABALIN
     Indication: Product used for unknown indication
     Route: 065
  13. BUDENA [Concomitant]
     Indication: Product used for unknown indication
     Route: 065
  14. ATROVENT [Concomitant]
     Active Substance: IPRATROPIUM BROMIDE
     Indication: Product used for unknown indication
     Route: 065
  15. SERTAL COMPUESTO [CLONIXIN LYSINATE;PARGEVERI [Concomitant]
     Indication: Product used for unknown indication
     Route: 065

REACTIONS (15)
  - Arrhythmia [Not Recovered/Not Resolved]
  - Malignant neoplasm progression [Unknown]
  - Diarrhoea [Recovering/Resolving]
  - Cough [Not Recovered/Not Resolved]
  - Vocal cord disorder [Not Recovered/Not Resolved]
  - Off label use [Not Recovered/Not Resolved]
  - Abdominal pain [Not Recovered/Not Resolved]
  - Blood pressure increased [Unknown]
  - Rash [Not Recovered/Not Resolved]
  - Diarrhoea [Not Recovered/Not Resolved]
  - Headache [Recovering/Resolving]
  - Fatigue [Not Recovered/Not Resolved]
  - Decreased appetite [Not Recovered/Not Resolved]
  - Nausea [Not Recovered/Not Resolved]
  - Influenza [Not Recovered/Not Resolved]

NARRATIVE: CASE EVENT DATE: 20250424
